FAERS Safety Report 7361263 (Version 37)
Quarter: 2018Q3

REPORT INFORMATION
  Report Type: Report from Study
  Country: CA (occurrence: CA)
  Receive Date: 20100421
  Receipt Date: 20180711
  Transmission Date: 20181010
  Serious: Yes (Other)
  Sender: FDA-Public Use
  Company Number: PHHY2010CA22484

PATIENT
  Age: 49 Year
  Sex: Female

DRUGS (8)
  1. DOMPERIDONE [Concomitant]
     Active Substance: DOMPERIDONE
     Indication: PRODUCT USED FOR UNKNOWN INDICATION
     Route: 065
  2. SANDOSTATIN LAR DEPOT [Suspect]
     Active Substance: OCTREOTIDE ACETATE
     Dosage: 30 MG, EVERY 4 WEEKS
     Route: 030
  3. SANDOSTATIN LAR DEPOT [Suspect]
     Active Substance: OCTREOTIDE ACETATE
     Dosage: 30 MG, QMO (EVERY 4 WEEKS)
     Route: 030
     Dates: start: 20041101
  4. SYNTHROID [Concomitant]
     Active Substance: LEVOTHYROXINE SODIUM
     Indication: PRODUCT USED FOR UNKNOWN INDICATION
     Dosage: 0.05 MG, QD
     Route: 065
  5. METOCLOPRAMIDE. [Concomitant]
     Active Substance: METOCLOPRAMIDE
     Indication: PRODUCT USED FOR UNKNOWN INDICATION
     Dosage: 5 MG, BID
     Route: 065
  6. SANDOSTATIN LAR DEPOT [Suspect]
     Active Substance: OCTREOTIDE ACETATE
     Dosage: 30 MG, QMO
     Route: 030
     Dates: start: 20170829
  7. SANDOSTATIN LAR DEPOT [Suspect]
     Active Substance: OCTREOTIDE ACETATE
     Indication: ACROMEGALY
     Dosage: 30 MG, EVERY 4 WEEKS
     Route: 030
  8. TORADOL [Concomitant]
     Active Substance: KETOROLAC TROMETHAMINE
     Indication: PRODUCT USED FOR UNKNOWN INDICATION
     Dosage: 10 MG, UNK (EVERY 12 HOURS)
     Route: 065

REACTIONS (45)
  - Migraine [Unknown]
  - Choking [Unknown]
  - Dysphagia [Unknown]
  - Insulin-like growth factor increased [Unknown]
  - Pruritus generalised [Unknown]
  - Needle issue [Unknown]
  - Fall [Unknown]
  - Neoplasm progression [Unknown]
  - Menstruation irregular [Unknown]
  - Hot flush [Unknown]
  - Hypersensitivity [Unknown]
  - Vertigo [Unknown]
  - Pain [Recovered/Resolved]
  - Injury associated with device [Unknown]
  - Laryngitis [Recovered/Resolved]
  - Rash pruritic [Unknown]
  - Nausea [Unknown]
  - Intracranial aneurysm [Unknown]
  - Headache [Unknown]
  - Concussion [Unknown]
  - Thyroid mass [Unknown]
  - Arthralgia [Unknown]
  - Premenstrual headache [Recovering/Resolving]
  - Fatigue [Unknown]
  - Wrong technique in product usage process [Unknown]
  - Underdose [Unknown]
  - Back pain [Unknown]
  - Oropharyngeal pain [Recovered/Resolved]
  - Drug effect decreased [Unknown]
  - Musculoskeletal pain [Unknown]
  - Blood pressure diastolic increased [Unknown]
  - Hypotension [Unknown]
  - Influenza like illness [Recovered/Resolved]
  - Vomiting [Unknown]
  - Injection site pain [Unknown]
  - Head injury [Unknown]
  - Erythema multiforme [Unknown]
  - Visual impairment [Unknown]
  - Viral infection [Recovered/Resolved]
  - Nasal discharge discolouration [Recovered/Resolved]
  - Dyspnoea [Unknown]
  - Dizziness [Unknown]
  - Aura [Not Recovered/Not Resolved]
  - Pain in extremity [Unknown]
  - Migraine [Recovered/Resolved]

NARRATIVE: CASE EVENT DATE: 20140212
